FAERS Safety Report 15204315 (Version 4)
Quarter: 2018Q4

REPORT INFORMATION
  Report Type: Not Available
  Country: US (occurrence: US)
  Receive Date: 20180726
  Receipt Date: 20181217
  Transmission Date: 20190204
  Serious: Yes (Death, Hospitalization, Other)
  Sender: FDA-Public Use
  Company Number: US-NEUROCRINE BIOSCIENCES INC.-2018NBI02159

PATIENT
  Age: 73 Year
  Sex: Female
  Weight: 102.6 kg

DRUGS (18)
  1. BETHANECHOL CHLORIDE. [Concomitant]
     Active Substance: BETHANECHOL CHLORIDE
  2. CLONIDINE. [Concomitant]
     Active Substance: CLONIDINE
  3. PLAVIX [Concomitant]
     Active Substance: CLOPIDOGREL BISULFATE
  4. ATORVASTATIN [Concomitant]
     Active Substance: ATORVASTATIN
  5. CLONAZEPAM. [Concomitant]
     Active Substance: CLONAZEPAM
  6. FUROSEMIDE. [Concomitant]
     Active Substance: FUROSEMIDE
  7. INGREZZA [Suspect]
     Active Substance: VALBENAZINE
     Indication: TARDIVE DYSKINESIA
     Route: 048
     Dates: start: 20180522, end: 20181114
  8. BRILINTA [Concomitant]
     Active Substance: TICAGRELOR
  9. HYDROCORTISONE. [Concomitant]
     Active Substance: HYDROCORTISONE
  10. MORPHINE SULFATE ER BEADS [Concomitant]
  11. RISPERIDONE. [Concomitant]
     Active Substance: RISPERIDONE
  12. CARVEDILOL. [Concomitant]
     Active Substance: CARVEDILOL
  13. OMEPRAZOLE. [Concomitant]
     Active Substance: OMEPRAZOLE
  14. POTASSIUM CHLORIDE ER [Concomitant]
     Active Substance: POTASSIUM CHLORIDE
  15. ASPIRIN. [Concomitant]
     Active Substance: ASPIRIN
  16. LEVOTHYROXINE. [Concomitant]
     Active Substance: LEVOTHYROXINE
  17. LOSARTAN. [Concomitant]
     Active Substance: LOSARTAN
  18. OXYBUTYNIN. [Concomitant]
     Active Substance: OXYBUTYNIN CHLORIDE

REACTIONS (5)
  - Vision blurred [Unknown]
  - Pulmonary embolism [Fatal]
  - Myocardial infarction [Unknown]
  - Myocardial infarction [Unknown]
  - Bundle branch block right [Unknown]

NARRATIVE: CASE EVENT DATE: 2018
